FAERS Safety Report 4790348-3 (Version None)
Quarter: 2005Q4

REPORT INFORMATION
  Report Type: 
  Country: None (occurrence: None)
  Receive Date: 20051005
  Receipt Date: 20051005
  Transmission Date: 20060501
  Serious: Yes (Hospitalization)
  Sender: FDA-Public Use
  Company Number: None

PATIENT
  Sex: Male

DRUGS (10)
  1. VANCOMYCIN [Suspect]
     Indication: INFECTION PROPHYLAXIS
     Dosage: 1250 MG IV
     Route: 042
     Dates: start: 20040720, end: 20040807
  2. VANCOMYCIN [Suspect]
     Indication: PROPHYLAXIS AGAINST TRANSPLANT REJECTION
     Dosage: 1250 MG IV
     Route: 042
     Dates: start: 20040720, end: 20040807
  3. LEVOFLOXACIN [Concomitant]
  4. METRONIDAZOLE [Concomitant]
  5. FOSINOPRIL SODIUM [Concomitant]
  6. LABETALOL [Concomitant]
  7. METOPROLOL [Concomitant]
  8. METFORMIN [Concomitant]
  9. FLOMAX [Concomitant]
  10. ATORVASTATIN [Concomitant]

REACTIONS (1)
  - RASH [None]
